FAERS Safety Report 15861640 (Version 1)
Quarter: 2018Q4

REPORT INFORMATION
  Report Type: Spontaneous
  Country: US (occurrence: US)
  Receive Date: 20181231
  Receipt Date: 20181231
  Transmission Date: 20190205
  Serious: No
  Sender: FDA-Public Use
  Company Number: None

PATIENT
  Age: 57 Year
  Sex: Female

DRUGS (1)
  1. OTREXUP [Suspect]
     Active Substance: METHOTREXATE
     Indication: PSORIASIS
     Dosage: INJECT 20MG (0.4ML) SUBCUTANEOUSLY ONCE WEEKLY ON?THE SAME DAY EAC HWEEK AS DIRECTED?
     Route: 058
     Dates: start: 201810

REACTIONS (1)
  - Uterine dilation and curettage [None]
